FAERS Safety Report 13114496 (Version 1)
Quarter: 2017Q1

REPORT INFORMATION
  Report Type: Spontaneous
  Country: US (occurrence: US)
  Receive Date: 20170113
  Receipt Date: 20170113
  Transmission Date: 20170428
  Serious: No
  Sender: FDA-Public Use
  Company Number: US-BAYER-2017-005212

PATIENT
  Age: 64 Year
  Sex: Female

DRUGS (3)
  1. PROGESTERONE. [Concomitant]
     Active Substance: PROGESTERONE
     Dosage: 100 MG, QD
     Route: 048
  2. CLIMARA [Suspect]
     Active Substance: ESTRADIOL
     Dosage: 05 MG
     Route: 062
  3. SYNTHROID [Concomitant]
     Active Substance: LEVOTHYROXINE SODIUM
     Indication: HYPOTHYROIDISM
     Dosage: UNK

REACTIONS (2)
  - Vaginal haemorrhage [Recovering/Resolving]
  - Product adhesion issue [None]

NARRATIVE: CASE EVENT DATE: 201606
